FAERS Safety Report 13757405 (Version 3)
Quarter: 2017Q3

REPORT INFORMATION
  Report Type: Report from Study
  Country: BR (occurrence: BR)
  Receive Date: 20170716
  Receipt Date: 20170719
  Transmission Date: 20171127
  Serious: Yes (Hospitalization, Other)
  Sender: FDA-Public Use
  Company Number: ALCN2017BR004403

PATIENT
  Sex: Female
  Weight: 69 kg

DRUGS (11)
  1. DUOTRAVATAN [BAC] [Suspect]
     Active Substance: TIMOLOL MALEATE\TRAVOPROST
     Indication: GLAUCOMA
     Dosage: UNK UNK, QD (FOUR YEARS AGO)
     Route: 047
  2. DUOTRAVATAN [BAC] [Suspect]
     Active Substance: TIMOLOL MALEATE\TRAVOPROST
     Dosage: 1 DF (5MG), QD
     Route: 047
     Dates: end: 20170709
  3. NAPRIX [Concomitant]
     Active Substance: RAMIPRIL
     Indication: BLOOD PRESSURE MEASUREMENT
     Dosage: 1 DF(5/5 MG), QD (STARTED A LONG TIME AGO, FOR APPROXIMATELY 10 YEARS)
     Route: 048
  4. AAS [Concomitant]
     Active Substance: ASPIRIN
     Indication: BLOOD DISORDER
     Dosage: 1 DF(100 MG), QD (STARTED THREE YEARS AG)
     Route: 065
  5. ALPHAGAN P [Concomitant]
     Active Substance: BRIMONIDINE TARTRATE
     Indication: GLAUCOMA
     Dosage: 1 DF, QD (BOTH EYES)
     Route: 047
     Dates: start: 20170709
  6. LASIX [Concomitant]
     Active Substance: FUROSEMIDE
     Indication: PERIPHERAL SWELLING
     Dosage: 1 DF, QD (REPORTER EXPLAINS THAT SHE ONLY USES IT WHEN HER LEGS SWELLING)
     Route: 048
  7. RECONTER [Concomitant]
     Active Substance: ESCITALOPRAM OXALATE
     Indication: PRODUCT USED FOR UNKNOWN INDICATION
     Dosage: 1 DF, QD
     Route: 048
  8. PANTOPRAZOLE [Concomitant]
     Active Substance: PANTOPRAZOLE
     Indication: GASTROINTESTINAL DISORDER
     Dosage: 1 DF, QD (THREE YEARS AGO)
     Route: 048
  9. ASPIRIN C [Concomitant]
     Indication: BLOOD DISORDER
     Dosage: 1 DF, QD (THREE YEARS AGO)
     Route: 048
  10. OMEGA 3 [Concomitant]
     Active Substance: OMEGA-3 FATTY ACIDS
     Indication: PRODUCT USED FOR UNKNOWN INDICATION
     Dosage: 1 DF, QD (THREE YEARS AGO)
     Route: 048
  11. DORMIRE [Concomitant]
     Indication: SLEEP DISORDER
     Dosage: 1 DF, QHS
     Route: 048

REACTIONS (11)
  - Malaise [Unknown]
  - Overweight [Unknown]
  - Glaucoma [Unknown]
  - Pulmonary oedema [Recovered/Resolved]
  - Body height decreased [Unknown]
  - Fatigue [Unknown]
  - Dyspnoea [Unknown]
  - Cardiac failure [Recovering/Resolving]
  - Hypoacusis [Recovering/Resolving]
  - Asthenia [Unknown]
  - Blindness [Not Recovered/Not Resolved]
